FAERS Safety Report 26165615 (Version 1)
Quarter: 2025Q4

REPORT INFORMATION
  Report Type: Spontaneous
  Country: EU (occurrence: EU)
  Receive Date: 20251216
  Receipt Date: 20251216
  Transmission Date: 20260117
  Serious: Yes (Other)
  Sender: LUNDBECK
  Company Number: None

PATIENT
  Age: 57 Year
  Sex: Female

DRUGS (3)
  1. VYEPTI [Suspect]
     Active Substance: EPTINEZUMAB-JJMR
     Indication: Migraine
     Dosage: M6
     Route: 041
     Dates: start: 20250902, end: 20250902
  2. VYEPTI [Suspect]
     Active Substance: EPTINEZUMAB-JJMR
     Dosage: M3
     Route: 041
     Dates: start: 20250520, end: 20250520
  3. VYEPTI [Suspect]
     Active Substance: EPTINEZUMAB-JJMR
     Dosage: M0
     Route: 041
     Dates: start: 20250218, end: 20250218

REACTIONS (2)
  - Malaise [Recovering/Resolving]
  - Hypotension [Recovered/Resolved]

NARRATIVE: CASE EVENT DATE: 20250221
